FAERS Safety Report 12729050 (Version 7)
Quarter: 2019Q3

REPORT INFORMATION
  Report Type: Spontaneous
  Country: FR (occurrence: FR)
  Receive Date: 20160909
  Receipt Date: 20190919
  Transmission Date: 20191004
  Serious: Yes (Life-Threatening, Hospitalization, Other)
  Sender: FDA-Public Use
  Company Number: PHHY2016FR124250

PATIENT
  Age: 12 Year
  Sex: Female
  Weight: 34.2 kg

DRUGS (11)
  1. IFOSFAMIDE. [Suspect]
     Active Substance: IFOSFAMIDE
     Indication: OSTEOSARCOMA
     Dosage: 3.56 G, QD
     Route: 042
     Dates: start: 20160720, end: 20160722
  2. METHOTREXATE. [Suspect]
     Active Substance: METHOTREXATE
     Indication: OSTEOSARCOMA
     Dosage: UNK
     Route: 042
     Dates: start: 201602
  3. FRAGMINE [Concomitant]
     Active Substance: DALTEPARIN SODIUM
     Indication: PRODUCT USED FOR UNKNOWN INDICATION
     Dosage: UNK
     Route: 065
  4. ELUDRIL [Concomitant]
     Indication: PRODUCT USED FOR UNKNOWN INDICATION
     Dosage: UNK
     Route: 065
  5. ETOPOPHOS [Suspect]
     Active Substance: ETOPOSIDE PHOSPHATE
     Indication: OSTEOSARCOMA
     Dosage: 89 MG, BID
     Route: 042
     Dates: start: 20160722
  6. MESNA. [Concomitant]
     Active Substance: MESNA
     Indication: PRODUCT USED FOR UNKNOWN INDICATION
     Dosage: 100 MG/ML, UNK
     Route: 065
  7. ZOPHREN [Suspect]
     Active Substance: ONDANSETRON
     Indication: VOMITING
     Dosage: 16 MG, QD
     Route: 042
     Dates: start: 20160720, end: 20160722
  8. ZOPHREN [Suspect]
     Active Substance: ONDANSETRON
     Indication: OSTEOSARCOMA
  9. FORLAX [Concomitant]
     Active Substance: POLYETHYLENE GLYCOL 4000
     Indication: PRODUCT USED FOR UNKNOWN INDICATION
     Dosage: UNK
     Route: 065
  10. GABAPENTINE [Concomitant]
     Active Substance: GABAPENTIN
     Indication: PRODUCT USED FOR UNKNOWN INDICATION
     Dosage: UNK
     Route: 065
  11. LARGACTIL [Suspect]
     Active Substance: CHLORPROMAZINE
     Indication: VOMITING
     Dosage: 25 MG, QD
     Route: 042
     Dates: start: 20160720, end: 20160722

REACTIONS (7)
  - Encephalopathy [Recovered/Resolved]
  - Contraindicated product administered [Unknown]
  - Anal incontinence [Recovered/Resolved]
  - Coma [Recovered/Resolved]
  - Vision blurred [Recovering/Resolving]
  - Off label use [Unknown]
  - Urinary incontinence [Recovered/Resolved]

NARRATIVE: CASE EVENT DATE: 20160722
